FAERS Safety Report 10710774 (Version 3)
Quarter: 2016Q2

REPORT INFORMATION
  Report Type: Spontaneous
  Country: US (occurrence: US)
  Receive Date: 20150114
  Receipt Date: 20160426
  Transmission Date: 20160815
  Serious: Yes (Other)
  Sender: FDA-Public Use
  Company Number: US-JNJFOC-20140824610

PATIENT
  Sex: Male

DRUGS (6)
  1. RISPERDAL [Suspect]
     Active Substance: RISPERIDONE
     Indication: SENSORY INTEGRATIVE DYSFUNCTION
     Dosage: VARYING DOSES OF 0.125 MG TO 1 MG
     Route: 048
     Dates: start: 2004, end: 2014
  2. RISPERDAL [Suspect]
     Active Substance: RISPERIDONE
     Indication: SENSORY INTEGRATIVE DYSFUNCTION
     Route: 048
     Dates: start: 200410
  3. RISPERDAL [Suspect]
     Active Substance: RISPERIDONE
     Indication: AUTISM
     Dosage: VARYING DOSES OF 0.125 MG TO 1 MG
     Route: 048
     Dates: start: 2004, end: 2014
  4. RISPERDAL [Suspect]
     Active Substance: RISPERIDONE
     Indication: AUTISM SPECTRUM DISORDER
     Dosage: VARYING DOSES OF 0.125 MG TO 1 MG
     Route: 048
     Dates: start: 2004, end: 2014
  5. RISPERDAL [Suspect]
     Active Substance: RISPERIDONE
     Indication: AUTISM SPECTRUM DISORDER
     Route: 048
     Dates: start: 200410
  6. RISPERDAL [Suspect]
     Active Substance: RISPERIDONE
     Indication: AUTISM
     Route: 048
     Dates: start: 200410

REACTIONS (4)
  - Gynaecomastia [Not Recovered/Not Resolved]
  - Hyperprolactinaemia [Unknown]
  - Overweight [Not Recovered/Not Resolved]
  - Rash [Unknown]

NARRATIVE: CASE EVENT DATE: 2004
